FAERS Safety Report 6250720-1 (Version None)
Quarter: 2009Q2

REPORT INFORMATION
  Report Type: 
  Country: None (occurrence: None)
  Receive Date: 20090630
  Receipt Date: 20080804
  Transmission Date: 20091009
  Serious: No
  Sender: FDA-Public Use
  Company Number: US-ABBOTT-08P-163-0468432-00

PATIENT
  Sex: Female
  Weight: 83.99 kg

DRUGS (14)
  1. ZEMPLAR [Suspect]
     Indication: DRUG USE FOR UNKNOWN INDICATION
     Route: 048
     Dates: start: 20080501
  2. METFORMIN HCL [Concomitant]
     Indication: DIABETES MELLITUS
  3. GLIPIZIDE [Concomitant]
     Indication: DIABETES MELLITUS
  4. PERSERVISION [Concomitant]
     Indication: VITAMIN SUPPLEMENTATION
  5. ENALAPRIL [Concomitant]
     Indication: CARDIAC DISORDER
  6. PIOGLITAZONE [Concomitant]
     Indication: DIABETES MELLITUS
  7. HYDROCHLOROTHIAZIDE [Concomitant]
     Indication: OEDEMA
  8. METOPROLOL SUCCINATE [Concomitant]
     Indication: HYPERTENSION
  9. WARFARIN SODIUM [Concomitant]
     Indication: ANTICOAGULANT THERAPY
  10. ERGOCALCIFEROL [Concomitant]
     Indication: VITAMIN SUPPLEMENTATION
  11. IRON [Concomitant]
     Indication: MINERAL SUPPLEMENTATION
  12. PRAZASTATIN [Concomitant]
     Indication: DRUG USE FOR UNKNOWN INDICATION
  13. CYANOCOBALAMIN-TANNIN COMPLEX [Concomitant]
     Indication: VITAMIN SUPPLEMENTATION
     Route: 030
  14. FUROSEMIDE INTENSOL [Concomitant]
     Indication: OEDEMA
     Route: 048

REACTIONS (1)
  - OEDEMA PERIPHERAL [None]
